FAERS Safety Report 5157593-9 (Version None)
Quarter: 2006Q4

REPORT INFORMATION
  Report Type: 
  Country: None (occurrence: None)
  Receive Date: 20061127
  Receipt Date: 20061113
  Transmission Date: 20070319
  Serious: Yes (Death, Hospitalization, Other)
  Sender: FDA-Public Use
  Company Number: US-ELI_LILLY_AND_COMPANY-US200611002373

PATIENT
  Sex: Female

DRUGS (4)
  1. ALIMTA [Suspect]
     Indication: NON-SMALL CELL LUNG CANCER
     Dosage: 950 MG, UNK
     Dates: start: 20061017
  2. VITAMIN B-12 [Concomitant]
     Dates: start: 20060101
  3. FOLIC ACID [Concomitant]
     Dosage: UNK, UNKNOWN
     Route: 065
     Dates: start: 20060101
  4. CORTICOSTEROID NOS [Concomitant]
     Dosage: UNK, UNKNOWN
     Route: 065
     Dates: start: 20060101

REACTIONS (10)
  - ACIDOSIS [None]
  - ANAEMIA [None]
  - BLOOD BILIRUBIN INCREASED [None]
  - DIARRHOEA [None]
  - DRUG TOXICITY [None]
  - FLUID RETENTION [None]
  - LEUKOPENIA [None]
  - PANCYTOPENIA [None]
  - RENAL FAILURE [None]
  - STOMATITIS [None]
